FAERS Safety Report 6697555-3 (Version None)
Quarter: 2010Q2

REPORT INFORMATION
  Report Type: 
  Country: None (occurrence: None)
  Receive Date: 20100426
  Receipt Date: 20100126
  Transmission Date: 20101027
  Serious: No
  Sender: FDA-Public Use
  Company Number: US-ABBOTT-10P-163-0622989-00

PATIENT
  Sex: Female
  Weight: 81.72 kg

DRUGS (3)
  1. AZMACORT [Suspect]
     Indication: OESOPHAGEAL STENOSIS
     Dosage: FOUR TIMES DAILY
     Route: 055
     Dates: start: 19890101, end: 20040101
  2. AZMACORT [Suspect]
     Dosage: TWICE DAILY
     Route: 055
     Dates: start: 20040101, end: 20100101
  3. VENTALIN [Concomitant]
     Indication: OESOPHAGEAL STENOSIS

REACTIONS (3)
  - DYSPNOEA [None]
  - THROAT TIGHTNESS [None]
  - WEIGHT INCREASED [None]
